FAERS Safety Report 9203142 (Version 2)
Quarter: 2013Q3

REPORT INFORMATION
  Report Type: Spontaneous
  Country: US (occurrence: None)
  Receive Date: 20120709
  Receipt Date: 20130724
  Transmission Date: 20140515
  Serious: Yes (Hospitalization, Other)
  Sender: FDA-Public Use
  Company Number: PHEH2011US012608

PATIENT
  Age: 50 Year
  Sex: Female
  Weight: 47.4 kg

DRUGS (17)
  1. GLEEVEC (IMATINIB) UNKNOWN [Suspect]
     Indication: CHRONIC MYELOID LEUKAEMIA
     Route: 048
     Dates: start: 20090410, end: 20110713
  2. SPRYCEL (DASATINIB) [Suspect]
     Indication: CHRONIC MYELOID LEUKAEMIA
  3. METFORMIN (METFORMIN) [Concomitant]
  4. METOPROLOL (METOPROLOL) [Concomitant]
  5. ZETIA (EZETIMIBE) [Concomitant]
  6. SPIRONOLACTONE (SPIRONOLACTONE) [Concomitant]
  7. INSULIN HUMILIN R (INSULIN HUMAN ZINC SUSPENSION) [Concomitant]
  8. LEVEMIR (INSULIN DETEMIR) [Concomitant]
  9. VESICARE (SOLIFENACIN) [Concomitant]
  10. PLAVIX (CLOPIDOGREL SULFATE) [Concomitant]
  11. MAGNESIUM (MAGNESIUM) [Concomitant]
  12. BUMEX (BUMETANIDE) [Concomitant]
  13. POTASSIUM (POTASSIUM) [Concomitant]
  14. PREMARIN (ESTROGENS CONJUGATED) [Concomitant]
  15. MULTIVITAMINS (ASCORBIC ACID, ERGOCALCIFEROL, FOLIC ACID, NICOTINAMIDE, PANTHENOL, RETINOL, RIBOFLAVIN, THIAMINE HYDROCHLORIDE) [Concomitant]
  16. FOLIC ACID (FOLIC ACID) [Concomitant]
  17. IRON (IRON) [Concomitant]

REACTIONS (7)
  - Oedema [None]
  - Drug ineffective [None]
  - Pulmonary oedema [None]
  - Pleural effusion [None]
  - Chronic myeloid leukaemia [None]
  - Muscle spasms [None]
  - Malignant neoplasm progression [None]
